FAERS Safety Report 6163764-5 (Version None)
Quarter: 2009Q2

REPORT INFORMATION
  Report Type: 
  Country: None (occurrence: None)
  Receive Date: 20090420
  Receipt Date: 20090420
  Transmission Date: 20091009
  Serious: Yes (Hospitalization)
  Sender: FDA-Public Use
  Company Number: None

PATIENT
  Age: 18 Year
  Sex: Female

DRUGS (4)
  1. CARAFATE [Suspect]
     Dosage: 1GM QID
  2. NEURONTIN [Suspect]
     Dosage: 500 MG, TID, ORAL
  3. METOCLOPRAMIDE HCL [Suspect]
     Dosage: 3.5MG, Q8H, ORAL
     Route: 048
  4. PATIENT WAS TAKING 3 OTHER LIQUIDS [Concomitant]

REACTIONS (3)
  - DRUG INTERACTION [None]
  - HYPERGLYCAEMIA [None]
  - IMPAIRED GASTRIC EMPTYING [None]
